FAERS Safety Report 17622946 (Version 2)
Quarter: 2020Q2

REPORT INFORMATION
  Report Type: Spontaneous
  Country: DE (occurrence: DE)
  Receive Date: 20200403
  Receipt Date: 20200411
  Transmission Date: 20200713
  Serious: Yes (Other)
  Sender: FDA-Public Use
  Company Number: DE-AMGEN-DEUSP2020050114

PATIENT
  Age: 53 Year
  Sex: Female

DRUGS (2)
  1. AIMOVIG [Suspect]
     Active Substance: ERENUMAB-AOOE
     Indication: MIGRAINE
     Dosage: 70 MILLIGRAM, Q4WK
     Route: 065
     Dates: start: 20200212
  2. TRIPTAN [OXITRIPTAN] [Concomitant]
     Active Substance: OXITRIPTAN
     Indication: MIGRAINE
     Dosage: UNK
     Route: 065

REACTIONS (3)
  - Respiratory tract oedema [Not Recovered/Not Resolved]
  - Pruritus [Not Recovered/Not Resolved]
  - Muscle spasms [Not Recovered/Not Resolved]

NARRATIVE: CASE EVENT DATE: 20200212
